FAERS Safety Report 11800535 (Version 2)
Quarter: 2015Q4

REPORT INFORMATION
  Report Type: Report from Study
  Country: FR (occurrence: FR)
  Receive Date: 20151203
  Receipt Date: 20151215
  Transmission Date: 20160305
  Serious: Yes (Other)
  Sender: FDA-Public Use
  Company Number: FR-BRISTOL-MYERS SQUIBB COMPANY-BMS-2015-070811

PATIENT
  Age: 77 Year
  Sex: Male
  Weight: 76.96 kg

DRUGS (5)
  1. NIVOLUMAB [Suspect]
     Active Substance: NIVOLUMAB
     Dosage: 3 MG/KG, UNK 210MG
     Route: 065
     Dates: start: 20151109
  2. NIVOLUMAB [Suspect]
     Active Substance: NIVOLUMAB
     Indication: NON-SMALL CELL LUNG CANCER
     Dosage: 230 MG, UNK
     Route: 065
     Dates: start: 20150828
  3. COVERSYL                           /00790702/ [Concomitant]
     Active Substance: PERINDOPRIL
     Indication: HYPERTENSION
     Dosage: 4 MG, QD
     Route: 048
     Dates: start: 20140128
  4. NIVOLUMAB [Suspect]
     Active Substance: NIVOLUMAB
     Dosage: 231 MG, UNK
     Route: 065
     Dates: start: 20150925
  5. NIVOLUMAB [Suspect]
     Active Substance: NIVOLUMAB
     Dosage: 231 MG, UNK
     Route: 065
     Dates: start: 20151023

REACTIONS (2)
  - Renal failure [Not Recovered/Not Resolved]
  - Lymphopenia [Not Recovered/Not Resolved]

NARRATIVE: CASE EVENT DATE: 20150828
